FAERS Safety Report 24412772 (Version 1)
Quarter: 2024Q4

REPORT INFORMATION
  Report Type: Spontaneous
  Country: FR (occurrence: FR)
  Receive Date: 20241008
  Receipt Date: 20241008
  Transmission Date: 20250115
  Serious: Yes (Other)
  Sender: TEVA
  Company Number: None

PATIENT
  Age: 73 Year
  Sex: Male
  Weight: 64 kg

DRUGS (2)
  1. PACLITAXEL [Suspect]
     Active Substance: PACLITAXEL
     Indication: Adenocarcinoma pancreas
     Dosage: TIME INTERVAL: CYCLICAL: 138 MG/INJ (1 INJ/WEEK 3 WEEKS/4)
     Route: 042
     Dates: start: 20240306, end: 20240612
  2. GEMCITABINE [Suspect]
     Active Substance: GEMCITABINE
     Indication: Adenocarcinoma pancreas
     Dosage: TIME INTERVAL: CYCLICAL: 1700 MG/INJ (1 INJ/WEEK 3 WEEKS/4)
     Route: 042
     Dates: start: 20240306

REACTIONS (1)
  - Myalgia [Recovering/Resolving]

NARRATIVE: CASE EVENT DATE: 20240501
